FAERS Safety Report 11533929 (Version 1)
Quarter: 2015Q3

REPORT INFORMATION
  Report Type: Spontaneous
  Country: US (occurrence: US)
  Receive Date: 20150922
  Receipt Date: 20150922
  Transmission Date: 20151125
  Serious: No
  Sender: FDA-Public Use
  Company Number: US-TEVA-581348USA

PATIENT
  Age: 70 Year
  Sex: Male
  Weight: 74 kg

DRUGS (11)
  1. COUMADIN [Suspect]
     Active Substance: WARFARIN SODIUM
     Dosage: 1 MG ON ODD DYS AND 2 MG ON EVEN DAYS
  2. FUROSEMIDE. [Concomitant]
     Active Substance: FUROSEMIDE
     Dosage: 40 MILLIGRAM DAILY;
  3. LEVOTHYROXINE. [Concomitant]
     Active Substance: LEVOTHYROXINE
     Indication: THYROID DISORDER
     Dosage: .75 MILLIGRAM DAILY;
  4. HYDRALAZINE [Concomitant]
     Active Substance: HYDRALAZINE HYDROCHLORIDE
     Dosage: 30 MILLIGRAM DAILY;
  5. ASPIRIN. [Concomitant]
     Active Substance: ASPIRIN
     Indication: THROMBOSIS PROPHYLAXIS
     Dosage: 81 MILLIGRAM DAILY;
  6. ISOSORBIDE. [Concomitant]
     Active Substance: ISOSORBIDE
     Dosage: 30 MILLIGRAM DAILY;
  7. COUMADIN [Suspect]
     Active Substance: WARFARIN SODIUM
     Indication: THROMBOSIS PROPHYLAXIS
     Dosage: 5MG, CUT IN HALF, 2 AND HALF MG X1/DAY
     Dates: start: 2015
  8. METOLAZONE. [Concomitant]
     Active Substance: METOLAZONE
     Indication: RENAL IMPAIRMENT
  9. CARVEDILOL. [Suspect]
     Active Substance: CARVEDILOL
     Dosage: 6.25 MG CUT IN HALF, HALF A TABLET ONCE A DAY AND MENTION HE TAKES ONE HALF, TWICE A DAY
  10. POTASSIUM [Concomitant]
     Active Substance: POTASSIUM
     Dosage: 60 MILLIEQUIVALENTS DAILY;
  11. AMIODARONE [Concomitant]
     Active Substance: AMIODARONE
     Indication: LUNG DISORDER
     Dosage: 200 MILLIGRAM DAILY;

REACTIONS (3)
  - Ecchymosis [Unknown]
  - Epistaxis [Unknown]
  - Wrong technique in product usage process [Unknown]

NARRATIVE: CASE EVENT DATE: 201409
